FAERS Safety Report 19079424 (Version 1)
Quarter: 2021Q1

REPORT INFORMATION
  Report Type: Report from Study
  Country: US (occurrence: US)
  Receive Date: 20210331
  Receipt Date: 20210331
  Transmission Date: 20210420
  Serious: Yes (Other)
  Sender: FDA-Public Use
  Company Number: US-MYLANLABS-2020M1076795

PATIENT
  Sex: Female
  Weight: 82 kg

DRUGS (1)
  1. GLATIRAMER ACETATE INJECTION [Suspect]
     Active Substance: GLATIRAMER ACETATE
     Indication: RELAPSING-REMITTING MULTIPLE SCLEROSIS
     Dosage: THREE TIMES WEEKLY
     Route: 058

REACTIONS (10)
  - Incorrect dose administered [Unknown]
  - Drug ineffective [Unknown]
  - Gait disturbance [Unknown]
  - Hypoaesthesia [Unknown]
  - Injection site pain [Not Recovered/Not Resolved]
  - Headache [Unknown]
  - Burning sensation [Unknown]
  - Paraesthesia [Unknown]
  - Injection site mass [Unknown]
  - Feeling abnormal [Unknown]
